FAERS Safety Report 8381228-5 (Version None)
Quarter: 2012Q2

REPORT INFORMATION
  Report Type: 
  Country: None (occurrence: None)
  Receive Date: 20120523
  Receipt Date: 20120515
  Transmission Date: 20120825
  Serious: Yes (Other)
  Sender: FDA-Public Use
  Company Number: RU-ABBOTT-12P-251-0931091-00

PATIENT
  Age: 17 Year
  Sex: Male

DRUGS (6)
  1. DEPAKENE [Suspect]
     Indication: EPILEPSY
     Dosage: EXTENDED RELEASE COATED TABLETS, DAILY
     Route: 048
     Dates: start: 20120101
  2. DEPAKENE [Suspect]
     Dates: start: 20120423
  3. DEPAKENE [Suspect]
     Dates: start: 20040101
  4. DEPAKENE [Suspect]
     Dates: start: 20110101
  5. DEPAKENE [Suspect]
     Dosage: EXTENDED RELEASE COATED TABLETS, DAILY
     Route: 048
     Dates: start: 20120401, end: 20120423
  6. TOPAMAX [Concomitant]
     Indication: PRODUCT USED FOR UNKNOWN INDICATION

REACTIONS (3)
  - CONVULSION [None]
  - DRUG INEFFECTIVE [None]
  - DRUG LEVEL DECREASED [None]
